FAERS Safety Report 11104343 (Version 1)
Quarter: 2015Q2

REPORT INFORMATION
  Report Type: Spontaneous
  Country: CH (occurrence: CH)
  Receive Date: 20150511
  Receipt Date: 20150511
  Transmission Date: 20150821
  Serious: Yes (Hospitalization, Other)
  Sender: FDA-Public Use
  Company Number: CH-PFIZER INC-2015150558

PATIENT
  Age: 84 Year
  Sex: Female
  Weight: 46 kg

DRUGS (13)
  1. SEROQUEL XR [Interacting]
     Active Substance: QUETIAPINE FUMARATE
     Dosage: 600 MG, SINGLE
     Route: 048
     Dates: start: 20150403, end: 20150403
  2. KEPPRA [Concomitant]
     Active Substance: LEVETIRACETAM
     Indication: EPILEPSY
     Route: 048
     Dates: start: 201402
  3. DAFALGAN [Concomitant]
     Active Substance: ACETAMINOPHEN
     Dosage: 1 G, UNK
     Route: 048
     Dates: start: 20140715
  4. TRITTICO [Interacting]
     Active Substance: TRAZODONE HYDROCHLORIDE
     Dosage: 50 MG, SINGLE
     Route: 048
     Dates: start: 20150403, end: 20150403
  5. LISINOPRIL. [Concomitant]
     Active Substance: LISINOPRIL
     Dosage: 10 MG, UNK
     Route: 048
  6. QUETIAPINE SANDOZ [Concomitant]
     Active Substance: QUETIAPINE
     Dosage: 25 MG, AS NEEDED
     Route: 048
     Dates: start: 20140715
  7. IMPORTAL [Concomitant]
     Active Substance: LACTITOL
     Dates: start: 20140715
  8. BILOL COMP [Concomitant]
     Indication: ESSENTIAL HYPERTENSION
     Dosage: BISOPROLOL/HCT 5/12.5 MG/DAY
     Route: 048
  9. CALCIMAGON D3 [Concomitant]
     Active Substance: CALCIUM\CHOLECALCIFEROL
     Dosage: 1 DF, 2X/DAY
  10. LYRICA [Interacting]
     Active Substance: PREGABALIN
     Dosage: 75 MG, SINGLE
     Route: 048
     Dates: start: 20150403, end: 20150403
  11. ZOLPIDEM MEPHA [Concomitant]
     Dosage: 10 MG, AS NEEDED
     Dates: start: 20150206
  12. ADALAT CRONO [Concomitant]
     Active Substance: NIFEDIPINE
     Dosage: 30 MG, AS NEEDED
     Dates: start: 20140715
  13. METFIN [Suspect]
     Active Substance: METFORMIN HYDROCHLORIDE
     Dosage: 500 MG, SINGLE
     Route: 048
     Dates: start: 20150403, end: 20150403

REACTIONS (6)
  - Drug interaction [Recovered/Resolved]
  - Drug administration error [Recovered/Resolved]
  - Coma [Recovered/Resolved]
  - Hypotension [Recovered/Resolved]
  - Laryngeal oedema [Unknown]
  - Pneumonia aspiration [Unknown]

NARRATIVE: CASE EVENT DATE: 20150403
